FAERS Safety Report 5620877-1 (Version None)
Quarter: 2008Q1

REPORT INFORMATION
  Report Type: 
  Country: None (occurrence: None)
  Receive Date: 20080208
  Receipt Date: 20080205
  Transmission Date: 20080703
  Serious: Yes (Other)
  Sender: FDA-Public Use
  Company Number: CA-PFIZER INC-2008002575

PATIENT
  Sex: Female
  Weight: 68 kg

DRUGS (1)
  1. LIPITOR [Suspect]
     Indication: BLOOD CHOLESTEROL INCREASED
     Route: 048
     Dates: start: 20071201, end: 20071201

REACTIONS (5)
  - BACK PAIN [None]
  - DEPRESSION [None]
  - DYSPEPSIA [None]
  - IRRITABILITY [None]
  - MEMORY IMPAIRMENT [None]
